FAERS Safety Report 19934661 (Version 3)
Quarter: 2022Q1

REPORT INFORMATION
  Report Type: Spontaneous
  Country: US (occurrence: US)
  Receive Date: 20211008
  Receipt Date: 20220204
  Transmission Date: 20220423
  Serious: Yes (Other)
  Sender: FDA-Public Use
  Company Number: US-CELGENE-USA-20211000803

PATIENT
  Sex: Female
  Weight: 57 kg

DRUGS (3)
  1. REVLIMID [Suspect]
     Active Substance: LENALIDOMIDE
     Indication: Follicular lymphoma
     Dosage: 10 MILLIGRAM
     Route: 048
     Dates: start: 20210924
  2. RITUXAN [Concomitant]
     Active Substance: RITUXIMAB
     Indication: Product used for unknown indication
     Route: 065
     Dates: start: 20210928
  3. DEXAMETHASONE [Concomitant]
     Active Substance: DEXAMETHASONE
     Indication: Product used for unknown indication
     Route: 065
     Dates: start: 20210928

REACTIONS (12)
  - Thrombosis [Unknown]
  - Gingival pain [Unknown]
  - Muscle twitching [Unknown]
  - Limb discomfort [Unknown]
  - Gingival bleeding [Unknown]
  - Carpal tunnel syndrome [Unknown]
  - Pruritus [Unknown]
  - Muscle spasms [Unknown]
  - Hyperhidrosis [Unknown]
  - Night sweats [Unknown]
  - Pruritus [Unknown]
  - Decreased appetite [Unknown]

NARRATIVE: CASE EVENT DATE: 20210101
